FAERS Safety Report 20359952 (Version 1)
Quarter: 2022Q1

REPORT INFORMATION
  Report Type: Spontaneous
  Country: FR (occurrence: FR)
  Receive Date: 20220121
  Receipt Date: 20220121
  Transmission Date: 20220424
  Serious: Yes (Hospitalization, Other)
  Sender: FDA-Public Use
  Company Number: FR-AFSSAPS-CN20220017

PATIENT
  Age: 17 Year
  Sex: Female
  Weight: 65 kg

DRUGS (2)
  1. ACETAMINOPHEN [Suspect]
     Active Substance: ACETAMINOPHEN
     Indication: Pain
     Dosage: 4 GRAM (1G/H FOR 4H)
     Route: 048
     Dates: start: 20220102, end: 20220102
  2. VOLTARENE (DICLOFENAC SODIUM) [Concomitant]
     Active Substance: DICLOFENAC SODIUM
     Indication: Pain
     Dosage: 100 MILLIGRAM
     Route: 048
     Dates: start: 20211203, end: 20211213

REACTIONS (4)
  - Hepatocellular injury [Recovering/Resolving]
  - Hepatic failure [Recovered/Resolved]
  - Vomiting [Recovered/Resolved]
  - Abdominal pain [Recovered/Resolved]

NARRATIVE: CASE EVENT DATE: 20220102
